FAERS Safety Report 16151012 (Version 1)
Quarter: 2019Q2

REPORT INFORMATION
  Report Type: Spontaneous
  Country: CN (occurrence: CN)
  Receive Date: 20190402
  Receipt Date: 20190402
  Transmission Date: 20190711
  Serious: Yes (Other)
  Sender: FDA-Public Use
  Company Number: CN-BAXTER-2019BAX006322

PATIENT
  Age: 72 Year
  Sex: Male
  Weight: 61 kg

DRUGS (9)
  1. ENDOXAN [Suspect]
     Active Substance: CYCLOPHOSPHAMIDE
     Indication: DIFFUSE LARGE B-CELL LYMPHOMA
  2. PIRARUBICIN HYDROCHLORIDE [Suspect]
     Active Substance: PIRARUBICIN HYDROCHLORIDE
     Indication: TESTIS CANCER
     Dosage: 5% GS 500ML + PIRARUBICIN HYDROCHLORIDE FOR INJECTION 80MG/IVGTT ST
     Route: 041
     Dates: start: 20190309, end: 20190309
  3. 5% GLUCOSE  INJECTION [Suspect]
     Active Substance: DEXTROSE
     Dosage: 5% GS 500ML + PIRARUBICIN HYDROCHLORIDE FOR INJECTION 80MG/IVGTT ST
     Route: 041
     Dates: start: 20190309, end: 20190309
  4. XIAIKE [Suspect]
     Active Substance: VINDESINE
     Indication: DIFFUSE LARGE B-CELL LYMPHOMA
  5. 5% GLUCOSE  INJECTION [Suspect]
     Active Substance: DEXTROSE
     Indication: MEDICATION DILUTION
     Dosage: 5% GS 500ML + VINDESINE SULFATE FOR INJECTION 5MG/IVGTT ST
     Route: 041
     Dates: start: 20190309, end: 20190309
  6. PIRARUBICIN HYDROCHLORIDE [Suspect]
     Active Substance: PIRARUBICIN HYDROCHLORIDE
     Indication: DIFFUSE LARGE B-CELL LYMPHOMA
  7. XIAIKE [Suspect]
     Active Substance: VINDESINE
     Indication: TESTIS CANCER
     Dosage: 5% GS 500ML + VINDESINE SULFATE FOR INJECTION 5MG/IVGTT ST
     Route: 041
     Dates: start: 20190309, end: 20190309
  8. ENDOXAN [Suspect]
     Active Substance: CYCLOPHOSPHAMIDE
     Indication: TESTIS CANCER
     Dosage: 0.9% NS 20ML + CYCLOPHOSPHAMIDE FOR INJECTION 1.2G
     Route: 042
     Dates: start: 20190309, end: 20190309
  9. 0.9% SODIUM CHLORIDE INJECTION [Suspect]
     Active Substance: SODIUM CHLORIDE
     Indication: MEDICATION DILUTION
     Dosage: 0.9% NS 20ML + CYCLOPHOSPHAMIDE FOR INJECTION 1.2G
     Route: 042
     Dates: start: 20190309, end: 20190309

REACTIONS (2)
  - Leukopenia [Unknown]
  - Thrombocytopenia [Unknown]

NARRATIVE: CASE EVENT DATE: 20190315
